FAERS Safety Report 5079064-0 (Version None)
Quarter: 2006Q3

REPORT INFORMATION
  Report Type: 
  Country: None (occurrence: None)
  Receive Date: 20060814
  Receipt Date: 20060807
  Transmission Date: 20061208
  Serious: Yes (Hospitalization)
  Sender: FDA-Public Use
  Company Number: 2006AC01448

PATIENT
  Age: 50 Year
  Sex: Female

DRUGS (1)
  1. SYMBICORT [Suspect]
     Route: 055

REACTIONS (3)
  - ASPERGILLOSIS [None]
  - BRONCHOPULMONARY ASPERGILLOSIS ALLERGIC [None]
  - PULMONARY HAEMORRHAGE [None]
